FAERS Safety Report 12285192 (Version 1)
Quarter: 2016Q2

REPORT INFORMATION
  Report Type: Spontaneous
  Country: US (occurrence: US)
  Receive Date: 20160420
  Receipt Date: 20160420
  Transmission Date: 20160815
  Serious: No
  Sender: FDA-Public Use
  Company Number: US-TEVA-604100USA

PATIENT
  Age: 76 Year
  Sex: Male
  Weight: 95.34 kg

DRUGS (8)
  1. VIAGRA [Suspect]
     Active Substance: SILDENAFIL CITRATE
     Dosage: FREQUENCY NOT PROVIDED
  2. TAMSULOSIN [Suspect]
     Active Substance: TAMSULOSIN
     Indication: NOCTURIA
  3. KETOCONAZOLE. [Concomitant]
     Active Substance: KETOCONAZOLE
     Dosage: ONCE OR TWICE PER WEEK
  4. HYDROCHLOROTHIAZIDE W/LOSARTAN [Suspect]
     Active Substance: HYDROCHLOROTHIAZIDE\LOSARTAN
     Indication: HYPERTENSION
     Dosage: 100/25MG
     Route: 048
  5. TAMSULOSIN [Suspect]
     Active Substance: TAMSULOSIN
     Indication: PROSTATOMEGALY
     Dosage: .4 MILLIGRAM DAILY;
     Route: 048
     Dates: start: 2005
  6. VIAGRA [Suspect]
     Active Substance: SILDENAFIL CITRATE
     Dosage: FREQUENCY NOT PROVIDED
  7. VITAMINS [Concomitant]
     Active Substance: VITAMINS
  8. VIAGRA [Suspect]
     Active Substance: SILDENAFIL CITRATE
     Indication: ERECTILE DYSFUNCTION
     Dosage: FREQUENCY NOT PROVIDED
     Route: 065

REACTIONS (2)
  - Intervertebral disc degeneration [Unknown]
  - Body height decreased [Unknown]
